FAERS Safety Report 5023939-5 (Version None)
Quarter: 2006Q2

REPORT INFORMATION
  Report Type: 
  Country: None (occurrence: None)
  Receive Date: 20060426
  Receipt Date: 20060223
  Transmission Date: 20061013
  Serious: Yes (Other)
  Sender: FDA-Public Use
  Company Number: 2006028597

PATIENT
  Age: 85 Year
  Sex: Male
  Weight: 97.5234 kg

DRUGS (5)
  1. LYRICA [Suspect]
     Indication: OSTEOARTHRITIS
     Dosage: 75 MG (75 MG, 1 IN 1 D)
     Dates: start: 20060101
  2. LISINOPRIL [Concomitant]
  3. MEVACOR [Concomitant]
  4. AVODART [Concomitant]
  5. ALL OTHER THERAPEUTIC PRODUCTS (ALL OTHER THERAPEUTIC PRODUCTS) [Concomitant]

REACTIONS (3)
  - DIZZINESS [None]
  - PAIN [None]
  - SOMNOLENCE [None]
